FAERS Safety Report 5532069-5 (Version None)
Quarter: 2007Q4

REPORT INFORMATION
  Report Type: 
  Country: None (occurrence: None)
  Receive Date: 20071203
  Receipt Date: 20071123
  Transmission Date: 20080405
  Serious: Yes (Hospitalization)
  Sender: FDA-Public Use
  Company Number: B0497305A

PATIENT
  Age: 77 Year
  Sex: Female

DRUGS (2)
  1. ARIXTRA [Suspect]
     Indication: THROMBOSIS PROPHYLAXIS
     Dosage: 2.5MG PER DAY
     Route: 058
     Dates: start: 20070929, end: 20071001
  2. ORGARAN [Concomitant]
     Dates: end: 20070929

REACTIONS (4)
  - ANGIOEDEMA [None]
  - PRURITUS [None]
  - URINARY TRACT INFECTION [None]
  - URTICARIA [None]
